FAERS Safety Report 5863916-5 (Version None)
Quarter: 2008Q3

REPORT INFORMATION
  Report Type: 
  Country: None (occurrence: None)
  Receive Date: 20080829
  Receipt Date: 20080819
  Transmission Date: 20090109
  Serious: Yes (Death, Other)
  Sender: FDA-Public Use
  Company Number: CZ-BAYER-200825169GPV

PATIENT

DRUGS (5)
  1. FLUDARABINE [Suspect]
     Indication: STEM CELL TRANSPLANT
     Route: 065
  2. CYTARABINE [Suspect]
     Indication: STEM CELL TRANSPLANT
     Route: 065
  3. AMSACRINE [Suspect]
     Indication: STEM CELL TRANSPLANT
     Route: 065
  4. THYMOGLOBULIN [Suspect]
     Indication: STEM CELL TRANSPLANT
  5. CYCLOPHOSPHAMIDE [Suspect]
     Indication: STEM CELL TRANSPLANT
     Route: 065

REACTIONS (5)
  - ACUTE GRAFT VERSUS HOST DISEASE [None]
  - CEREBRAL HAEMORRHAGE [None]
  - CHRONIC GRAFT VERSUS HOST DISEASE [None]
  - MULTI-ORGAN FAILURE [None]
  - SEPTIC SHOCK [None]
